FAERS Safety Report 11152609 (Version 1)
Quarter: 2015Q2

REPORT INFORMATION
  Report Type: Spontaneous
  Country: FR (occurrence: FR)
  Receive Date: 20150601
  Receipt Date: 20150601
  Transmission Date: 20150821
  Serious: Yes (Hospitalization, Other)
  Sender: FDA-Public Use
  Company Number: FR-PFIZER INC-2015176431

PATIENT
  Age: 86 Year
  Sex: Female

DRUGS (12)
  1. LEVETIRACETAM. [Suspect]
     Active Substance: LEVETIRACETAM
     Dosage: 500 MG, 1X/DAY
     Route: 048
  2. TAHOR [Suspect]
     Active Substance: ATORVASTATIN CALCIUM
     Dosage: 10 MG, 1X/DAY
     Route: 048
  3. LEVETIRACETAM. [Suspect]
     Active Substance: LEVETIRACETAM
     Dosage: 500 MG, 2X/DAY
     Route: 048
     Dates: start: 20141112, end: 20141230
  4. TANGANIL [Suspect]
     Active Substance: ACETYLLEUCINE
     Dosage: 500 MG, DAILY
     Route: 048
     Dates: start: 20141112, end: 20141230
  5. PRETERAX /06377001/ [Concomitant]
     Active Substance: INDAPAMIDE\PERINDOPRIL
     Dosage: 1 DF, DAILY
  6. MIANSERINE HCL PCH [Suspect]
     Active Substance: MIANSERIN HYDROCHLORIDE
     Dosage: 10 MG, 1X/DAY
     Route: 048
  7. MIANSERINE HCL PCH [Suspect]
     Active Substance: MIANSERIN HYDROCHLORIDE
     Dosage: 20 MG, 1X/DAY
     Route: 048
     Dates: start: 20141118, end: 20141230
  8. INEXIUM [Concomitant]
     Active Substance: ESOMEPRAZOLE
     Dosage: 20 MG, 1X/DAY
     Dates: end: 20141230
  9. PREVISCAN [Concomitant]
     Active Substance: FLUINDIONE
     Dosage: 15 MG, DAILY
     Dates: end: 20141230
  10. TAHOR [Suspect]
     Active Substance: ATORVASTATIN CALCIUM
     Dosage: 40 MG, 1X/DAY
     Route: 048
     Dates: start: 20141116, end: 20141230
  11. STRESAM [Suspect]
     Active Substance: ETIFOXINE
     Dosage: 1 DF, 3X/DAY
     Route: 048
     Dates: end: 20141230
  12. FORTIMEL [Concomitant]
     Active Substance: DIETARY SUPPLEMENT
     Dosage: 2 DF, DAILY

REACTIONS (9)
  - Blood creatinine increased [Unknown]
  - Cholelithiasis [None]
  - Cholangitis [None]
  - Blood urea increased [Unknown]
  - Drug-induced liver injury [None]
  - Mixed liver injury [Recovered/Resolved with Sequelae]
  - Eosinophilia [None]
  - Pancreatitis chronic [Unknown]
  - Hepatic cyst [None]

NARRATIVE: CASE EVENT DATE: 20141229
